FAERS Safety Report 21476996 (Version 2)
Quarter: 2022Q4

REPORT INFORMATION
  Report Type: Spontaneous
  Country: GR (occurrence: GR)
  Receive Date: 20221019
  Receipt Date: 20221021
  Transmission Date: 20230112
  Serious: Yes (Death)
  Sender: FDA-Public Use
  Company Number: GR-ASTELLAS-2022US037005

PATIENT
  Age: 72 Year
  Sex: Male

DRUGS (16)
  1. AMPHOTERICIN B [Suspect]
     Active Substance: AMPHOTERICIN B
     Indication: Respiratory tract infection
     Dosage: UNK UNK, UNKNOWN FREQ.
     Route: 065
  2. AMPHOTERICIN B [Suspect]
     Active Substance: AMPHOTERICIN B
     Indication: Haemophagocytic lymphohistiocytosis
  3. OSELTAMIVIR [Suspect]
     Active Substance: OSELTAMIVIR
     Indication: Haemophagocytic lymphohistiocytosis
     Dosage: UNK UNK, UNKNOWN FREQ.
     Route: 065
  4. OSELTAMIVIR [Suspect]
     Active Substance: OSELTAMIVIR
     Indication: Respiratory tract infection
  5. CEFUROXIME [Suspect]
     Active Substance: CEFUROXIME
     Indication: Respiratory tract infection
     Dosage: UNK UNK, UNKNOWN FREQ.
     Route: 065
  6. CEFUROXIME [Suspect]
     Active Substance: CEFUROXIME
     Indication: Haemophagocytic lymphohistiocytosis
  7. CLARITHROMYCIN [Suspect]
     Active Substance: CLARITHROMYCIN
     Indication: Respiratory tract infection
     Dosage: UNK UNK, UNKNOWN FREQ.
     Route: 065
  8. CLARITHROMYCIN [Suspect]
     Active Substance: CLARITHROMYCIN
     Indication: Haemophagocytic lymphohistiocytosis
  9. AMOXICILLIN AND CLAVULANATE POTASSIUM [Suspect]
     Active Substance: AMOXICILLIN\CLAVULANATE POTASSIUM
     Indication: Respiratory tract infection
     Dosage: UNK UNK, UNKNOWN FREQ.
     Route: 065
  10. AMOXICILLIN AND CLAVULANATE POTASSIUM [Suspect]
     Active Substance: AMOXICILLIN\CLAVULANATE POTASSIUM
     Indication: Haemophagocytic lymphohistiocytosis
  11. VITAMIN B12 [Suspect]
     Active Substance: CYANOCOBALAMIN
     Indication: Respiratory tract infection
     Dosage: UNK UNK, UNKNOWN FREQ.
     Route: 065
  12. VITAMIN B12 [Suspect]
     Active Substance: CYANOCOBALAMIN
     Indication: Haemophagocytic lymphohistiocytosis
  13. PREDNISOLONE [Suspect]
     Active Substance: PREDNISOLONE
     Indication: Respiratory tract infection
     Dosage: UNK UNK, UNKNOWN FREQ.
     Route: 065
  14. PREDNISOLONE [Suspect]
     Active Substance: PREDNISOLONE
     Indication: Haemophagocytic lymphohistiocytosis
  15. GANCICLOVIR [Suspect]
     Active Substance: GANCICLOVIR
     Indication: Respiratory tract infection
     Dosage: UNK UNK, UNKNOWN FREQ.
     Route: 065
  16. GANCICLOVIR [Suspect]
     Active Substance: GANCICLOVIR
     Indication: Haemophagocytic lymphohistiocytosis

REACTIONS (2)
  - Drug ineffective [Fatal]
  - Off label use [Unknown]
